FAERS Safety Report 22879354 (Version 2)
Quarter: 2024Q2

REPORT INFORMATION
  Report Type: Spontaneous
  Country: KR (occurrence: KR)
  Receive Date: 20230829
  Receipt Date: 20240516
  Transmission Date: 20240716
  Serious: Yes (Other)
  Sender: FDA-Public Use
  Company Number: KR-BAYER-2023A120306

PATIENT
  Age: 40 Year
  Sex: Female

DRUGS (1)
  1. LAROTRECTINIB [Suspect]
     Active Substance: LAROTRECTINIB
     Indication: Dedifferentiated liposarcoma
     Dosage: UNK
     Dates: start: 20221020

REACTIONS (1)
  - Dedifferentiated liposarcoma [Unknown]

NARRATIVE: CASE EVENT DATE: 20230628
